FAERS Safety Report 24106114 (Version 1)
Quarter: 2024Q3

REPORT INFORMATION
  Report Type: Report from Study
  Country: ES (occurrence: ES)
  Receive Date: 20240717
  Receipt Date: 20240717
  Transmission Date: 20241016
  Serious: Yes (Other)
  Sender: ABBVIE
  Company Number: ES-ABBVIE-5599366

PATIENT
  Age: 57 Year
  Sex: Male

DRUGS (2)
  1. CARBIDOPA\LEVODOPA [Suspect]
     Active Substance: CARBIDOPA\LEVODOPA
     Indication: Parkinson^s disease
     Route: 050
     Dates: start: 20230525
  2. CARBIDOPA\LEVODOPA [Suspect]
     Active Substance: CARBIDOPA\LEVODOPA

REACTIONS (11)
  - Inguinal hernia [Recovering/Resolving]
  - Aggression [Not Recovered/Not Resolved]
  - Movement disorder [Unknown]
  - On and off phenomenon [Recovered/Resolved]
  - Speech disorder [Unknown]
  - Emotional disorder [Recovering/Resolving]
  - Therapeutic product effect incomplete [Unknown]
  - Nervousness [Unknown]
  - On and off phenomenon [Not Recovered/Not Resolved]
  - Euphoric mood [Not Recovered/Not Resolved]
  - Unevaluable event [Not Recovered/Not Resolved]

NARRATIVE: CASE EVENT DATE: 20231201
